FAERS Safety Report 9089962 (Version 1)
Quarter: 2013Q1

REPORT INFORMATION
  Report Type: Spontaneous
  Country: US (occurrence: US)
  Receive Date: 20130131
  Receipt Date: 20130131
  Transmission Date: 20140127
  Serious: Yes (Hospitalization, Other)
  Sender: FDA-Public Use
  Company Number: US-009507513-1301USA014285

PATIENT
  Sex: Female

DRUGS (8)
  1. SINGULAIR [Suspect]
  2. ESZOPICLONE [Concomitant]
  3. FLUOXETINE [Concomitant]
  4. ALPRAZOLAM [Concomitant]
  5. NORTRIPTYLINE [Concomitant]
  6. VENLAFAXINE HYDROCHLORIDE [Concomitant]
  7. QUETIAPINE FUMARATE [Concomitant]
  8. HYDROCODONE [Concomitant]

REACTIONS (1)
  - Suicide attempt [Unknown]
